FAERS Safety Report 16308458 (Version 1)
Quarter: 2019Q2

REPORT INFORMATION
  Report Type: Spontaneous
  Country: US (occurrence: US)
  Receive Date: 20190514
  Receipt Date: 20190514
  Transmission Date: 20190711
  Serious: No
  Sender: FDA-Public Use
  Company Number: US-TARO-2019TAR00116

PATIENT
  Sex: Male

DRUGS (1)
  1. DICLOFENAC SODIUM GEL 3% [Suspect]
     Active Substance: DICLOFENAC SODIUM
     Indication: PRECANCEROUS SKIN LESION
     Dosage: UNK
     Route: 061

REACTIONS (1)
  - Dry skin [Not Recovered/Not Resolved]
